FAERS Safety Report 6101059-6 (Version None)
Quarter: 2009Q1

REPORT INFORMATION
  Report Type: 
  Country: None (occurrence: None)
  Receive Date: 20090304
  Receipt Date: 20090219
  Transmission Date: 20090719
  Serious: Yes (Other)
  Sender: FDA-Public Use
  Company Number: ZA-BRISTOL-MYERS SQUIBB COMPANY-14526065

PATIENT
  Age: 31 Year
  Sex: Female

DRUGS (5)
  1. EFAVIRENZ [Suspect]
     Route: 048
     Dates: start: 20060104, end: 20080506
  2. STAVUDINE [Suspect]
     Route: 048
     Dates: start: 20060104, end: 20080506
  3. LAMIVUDINE [Suspect]
     Route: 048
     Dates: start: 20060104, end: 20080506
  4. LAMZID [Suspect]
     Dosage: 1 DF= 2 TABS
     Route: 048
     Dates: start: 20080507
  5. NEVIRAPINE [Suspect]
     Route: 048
     Dates: start: 20080507

REACTIONS (2)
  - ABORTION SPONTANEOUS [None]
  - PREGNANCY [None]
